FAERS Safety Report 16975512 (Version 1)
Quarter: 2019Q4

REPORT INFORMATION
  Report Type: Spontaneous
  Country: US (occurrence: US)
  Receive Date: 20191029
  Receipt Date: 20191029
  Transmission Date: 20200122
  Serious: Yes (Congenital Anomaly, Other)
  Sender: FDA-Public Use
  Company Number: None

PATIENT
  Age: 32 Year
  Sex: Female
  Weight: 91.35 kg

DRUGS (1)
  1. AIMOVIG [Suspect]
     Active Substance: ERENUMAB-AOOE
     Indication: MIGRAINE
     Dosage: ?          OTHER FREQUENCY:MONTHLY;?
     Route: 058
     Dates: start: 20180901, end: 20181112

REACTIONS (5)
  - Constipation [None]
  - Maternal exposure during pregnancy [None]
  - Premature baby [None]
  - Complication of pregnancy [None]
  - Premature baby death [None]

NARRATIVE: CASE EVENT DATE: 20190502
